FAERS Safety Report 6924188-3 (Version None)
Quarter: 2010Q3

REPORT INFORMATION
  Report Type: 
  Country: None (occurrence: None)
  Receive Date: 20100812
  Receipt Date: 20100812
  Transmission Date: 20110219
  Serious: No
  Sender: FDA-Public Use
  Company Number: None

PATIENT
  Age: 38 Year
  Sex: Female
  Weight: 68.0396 kg

DRUGS (1)
  1. IBUPROFEN [Suspect]
     Indication: CAESAREAN SECTION
     Dosage: 800 MG 2X DAY PO
     Route: 048
     Dates: start: 20100805, end: 20100810

REACTIONS (3)
  - MENINGITIS ASEPTIC [None]
  - MUSCULOSKELETAL STIFFNESS [None]
  - PYREXIA [None]
